FAERS Safety Report 6772781-3 (Version None)
Quarter: 2010Q2

REPORT INFORMATION
  Report Type: 
  Country: None (occurrence: None)
  Receive Date: 20100616
  Receipt Date: 20100603
  Transmission Date: 20101027
  Serious: Yes (Hospitalization)
  Sender: FDA-Public Use
  Company Number: RO-ELI_LILLY_AND_COMPANY-RO201006001457

PATIENT
  Sex: Male

DRUGS (1)
  1. ZYPADHERA [Suspect]
     Indication: SCHIZOPHRENIA
     Dosage: 20 MG, UNK
     Route: 030

REACTIONS (6)
  - ELECTROLYTE IMBALANCE [None]
  - GENERALISED OEDEMA [None]
  - MENINGEAL DISORDER [None]
  - MENTAL STATUS CHANGES [None]
  - NAUSEA [None]
  - VOMITING PROJECTILE [None]
